FAERS Safety Report 13756134 (Version 2)
Quarter: 2019Q1

REPORT INFORMATION
  Report Type: Spontaneous
  Country: GB (occurrence: GB)
  Receive Date: 20170714
  Receipt Date: 20190116
  Transmission Date: 20190417
  Serious: Yes (Other)
  Sender: FDA-Public Use
  Company Number: GB-ASTRAZENECA-2017SE71287

PATIENT
  Age: 64 Year
  Sex: Male

DRUGS (8)
  1. MONURIL [Suspect]
     Active Substance: FOSFOMYCIN TROMETHAMINE
     Indication: ARTHRITIS INFECTIVE
     Dosage: 1 SACHET, STARTED 4 YEARS AGO
     Route: 048
  2. FOLIC ACID. [Concomitant]
     Active Substance: FOLIC ACID
  3. VITAMIN D [Suspect]
     Active Substance: CHOLECALCIFEROL
     Indication: PRODUCT USED FOR UNKNOWN INDICATION
  4. OMEPRAZOLE. [Suspect]
     Active Substance: OMEPRAZOLE
     Indication: PRODUCT USED FOR UNKNOWN INDICATION
     Route: 048
  5. NUROFEN [Suspect]
     Active Substance: IBUPROFEN
     Indication: RHEUMATOID ARTHRITIS
     Route: 048
     Dates: end: 20170623
  6. ATENOLOL. [Concomitant]
     Active Substance: ATENOLOL
  7. PREDNISOLONE. [Concomitant]
     Active Substance: PREDNISOLONE
  8. DOMPERIDONE [Concomitant]
     Active Substance: DOMPERIDONE

REACTIONS (5)
  - Product use in unapproved indication [Unknown]
  - Product use issue [Unknown]
  - Blood creatinine increased [Unknown]
  - Renal impairment [Recovering/Resolving]
  - Overdose [Unknown]

NARRATIVE: CASE EVENT DATE: 20170623
